FAERS Safety Report 21071619 (Version 1)
Quarter: 2022Q3

REPORT INFORMATION
  Report Type: Spontaneous
  Country: US (occurrence: None)
  Receive Date: 20220712
  Receipt Date: 20220712
  Transmission Date: 20221027
  Serious: Yes (Death)
  Sender: FDA-Public Use
  Company Number: None

PATIENT
  Age: 90 Year
  Sex: Male

DRUGS (1)
  1. BEBTELOVIMAB [Suspect]
     Active Substance: BEBTELOVIMAB
     Dosage: FREQUENCY : ONCE;?
     Route: 040
     Dates: start: 20220630, end: 20220630

REACTIONS (2)
  - Cardiac arrest [None]
  - Infusion related reaction [None]

NARRATIVE: CASE EVENT DATE: 20220701
